FAERS Safety Report 6551251-1 (Version None)
Quarter: 2010Q1

REPORT INFORMATION
  Report Type: 
  Country: None (occurrence: None)
  Receive Date: 20100126
  Receipt Date: 20100114
  Transmission Date: 20100710
  Serious: Yes (Death, Hospitalization)
  Sender: FDA-Public Use
  Company Number: US-BAXTER-2010BH000194

PATIENT
  Age: 70 Year
  Sex: Male

DRUGS (4)
  1. DIANEAL [Suspect]
     Indication: PERITONEAL DIALYSIS
     Route: 033
  2. ANTI-TUBERCULOSIS [Suspect]
     Indication: TUBERCULOSIS
     Dates: start: 20090101
  3. REMERON [Suspect]
     Indication: DRUG USE FOR UNKNOWN INDICATION
  4. REMERON [Concomitant]
     Dates: end: 20090101

REACTIONS (5)
  - ABDOMINAL PAIN [None]
  - ALTERED STATE OF CONSCIOUSNESS [None]
  - DEATH [None]
  - JAUNDICE [None]
  - TUBERCULOSIS [None]
